FAERS Safety Report 8739488 (Version 5)
Quarter: 2014Q4

REPORT INFORMATION
  Report Type: Report from Study
  Country: US (occurrence: US)
  Receive Date: 20120823
  Receipt Date: 20141119
  Transmission Date: 20150529
  Serious: Yes (Other)
  Sender: FDA-Public Use
  Company Number: US-ALEXION PHARMACEUTICALS INC.-A201201344

PATIENT

DRUGS (5)
  1. SOLIRIS [Suspect]
     Active Substance: ECULIZUMAB
     Indication: PAROXYSMAL NOCTURNAL HAEMOGLOBINURIA
     Dosage: UNK
     Route: 042
     Dates: start: 20120604
  2. PROCRIT [Concomitant]
     Active Substance: ERYTHROPOIETIN
     Indication: PRODUCT USED FOR UNKNOWN INDICATION
     Route: 065
  3. LORAZEPAM. [Concomitant]
     Active Substance: LORAZEPAM
     Indication: PRODUCT USED FOR UNKNOWN INDICATION
     Dosage: UNK
     Route: 065
  4. MULTIVITAMINS PLUS IRON [Concomitant]
     Indication: PRODUCT USED FOR UNKNOWN INDICATION
     Dosage: UNK
     Route: 065
  5. FOLIC ACID. [Concomitant]
     Active Substance: FOLIC ACID
     Indication: PRODUCT USED FOR UNKNOWN INDICATION
     Dosage: UNK
     Route: 065

REACTIONS (10)
  - Auricular swelling [Unknown]
  - Thinking abnormal [Recovered/Resolved]
  - Joint swelling [Recovered/Resolved]
  - Nervousness [Recovering/Resolving]
  - Ear pain [Unknown]
  - Thrombosis [Recovered/Resolved]
  - Skin discolouration [Recovered/Resolved]
  - Weight decreased [Not Recovered/Not Resolved]
  - Pain in extremity [Recovered/Resolved]
  - Oedema peripheral [Recovered/Resolved]

NARRATIVE: CASE EVENT DATE: 201209
